FAERS Safety Report 14935153 (Version 1)
Quarter: 2018Q2

REPORT INFORMATION
  Report Type: Spontaneous
  Country: US (occurrence: US)
  Receive Date: 20180506
  Receipt Date: 20180506
  Transmission Date: 20180711
  Serious: No
  Sender: FDA-Public Use
  Company Number: None

PATIENT
  Age: 28 Year
  Sex: Female
  Weight: 48.6 kg

DRUGS (1)
  1. NUVARING [Suspect]
     Active Substance: ETHINYL ESTRADIOL\ETONOGESTREL
     Indication: CONTRACEPTION
     Route: 067
     Dates: start: 20180418, end: 20180506

REACTIONS (7)
  - Fatigue [None]
  - Headache [None]
  - Dizziness [None]
  - Hypersensitivity [None]
  - Depression [None]
  - Abdominal pain [None]
  - Vulvovaginal swelling [None]

NARRATIVE: CASE EVENT DATE: 20180506
